FAERS Safety Report 8449793-7 (Version None)
Quarter: 2012Q2

REPORT INFORMATION
  Report Type: 
  Country: None (occurrence: None)
  Receive Date: 20120613
  Receipt Date: 20120601
  Transmission Date: 20120825
  Serious: Yes (Hospitalization)
  Sender: FDA-Public Use
  Company Number: 2012AP001688

PATIENT
  Age: 78 Year
  Sex: Female

DRUGS (1)
  1. AMIODARONE HYDROCHLORIDE [Suspect]
     Indication: ATRIAL FIBRILLATION
     Dosage: 200 MG ; 400 MG

REACTIONS (6)
  - PULMONARY TOXICITY [None]
  - PELVIC FRACTURE [None]
  - EOSINOPHILIC PNEUMONIA ACUTE [None]
  - PRODUCTIVE COUGH [None]
  - INTERSTITIAL LUNG DISEASE [None]
  - FALL [None]
